FAERS Safety Report 25037413 (Version 1)
Quarter: 2025Q1

REPORT INFORMATION
  Report Type: Spontaneous
  Country: US (occurrence: US)
  Receive Date: 20250304
  Receipt Date: 20250304
  Transmission Date: 20250409
  Serious: No
  Sender: LEO PHARM
  Company Number: US-LEO Pharma-378028

PATIENT
  Age: 18 Year
  Sex: Male

DRUGS (3)
  1. ADBRY [Suspect]
     Active Substance: TRALOKINUMAB-LDRM
     Indication: Dermatitis atopic
     Route: 058
  2. SYSTANE NOS [Concomitant]
     Active Substance: UNSPECIFIED INGREDIENT
     Indication: Ocular hyperaemia
  3. SYSTANE NOS [Concomitant]
     Active Substance: UNSPECIFIED INGREDIENT
     Indication: Dry eye

REACTIONS (6)
  - Dry eye [Unknown]
  - Ocular hyperaemia [Unknown]
  - Contusion [Unknown]
  - Oropharyngeal pain [Unknown]
  - Erythema [Unknown]
  - Skin mass [Recovered/Resolved]
